FAERS Safety Report 23960676 (Version 2)
Quarter: 2024Q2

REPORT INFORMATION
  Report Type: Spontaneous
  Country: DE (occurrence: DE)
  Receive Date: 20240611
  Receipt Date: 20240619
  Transmission Date: 20240716
  Serious: Yes (Other)
  Sender: FDA-Public Use
  Company Number: None

PATIENT
  Age: 58 Year
  Sex: Male

DRUGS (4)
  1. FERRIPROX [Suspect]
     Active Substance: DEFERIPRONE
     Indication: Thalassaemia
     Dosage: UNK
     Route: 065
  2. EXJADE [Suspect]
     Active Substance: DEFERASIROX
     Indication: Thalassaemia
     Dosage: UNK UNK, QD
     Route: 065
  3. DEFERASIROX [Suspect]
     Active Substance: DEFERASIROX
     Indication: Thalassaemia
     Dosage: UNK, QD
     Route: 065
  4. HUMAN RED BLOOD CELL [Concomitant]
     Active Substance: HUMAN RED BLOOD CELL
     Indication: Product used for unknown indication
     Dosage: 2 DOSAGE FORM, Q4W
     Route: 065

REACTIONS (4)
  - Renal infarct [Unknown]
  - Dyspnoea [Not Recovered/Not Resolved]
  - Haemoglobin decreased [Unknown]
  - Diarrhoea [Not Recovered/Not Resolved]

NARRATIVE: CASE EVENT DATE: 20220101
